FAERS Safety Report 8587743-3 (Version None)
Quarter: 2012Q3

REPORT INFORMATION
  Report Type: 
  Country: None (occurrence: None)
  Receive Date: 20120813
  Receipt Date: 20120801
  Transmission Date: 20120928
  Serious: Yes (Other)
  Sender: FDA-Public Use
  Company Number: BR-AMGEN-BRASP2012049642

PATIENT
  Age: 62 Year
  Sex: Female
  Weight: 97 kg

DRUGS (4)
  1. ENBREL [Suspect]
     Indication: RHEUMATOID ARTHRITIS
     Dosage: 25 MG, 2X/WEEK
     Route: 058
     Dates: start: 20110901
  2. AMITRIPTYLINE HCL [Concomitant]
     Indication: BLOOD PRESSURE
     Dosage: 20 MG, UNK
  3. ASPIRIN [Concomitant]
     Indication: BLOOD DISORDER
     Dosage: UNK
  4. CILOSTAZOL [Concomitant]
     Indication: VARICOSE VEIN
     Dosage: 100 MG, UNK

REACTIONS (3)
  - VENOUS OCCLUSION [None]
  - EXOSTOSIS [None]
  - JOINT SWELLING [None]
